FAERS Safety Report 26032731 (Version 1)
Quarter: 2025Q4

REPORT INFORMATION
  Report Type: Spontaneous
  Country: EU (occurrence: EU)
  Receive Date: 20251112
  Receipt Date: 20251112
  Transmission Date: 20260117
  Serious: Yes (Life-Threatening, Hospitalization, Disabling, Other)
  Sender: AUROBINDO
  Company Number: EU-EMA-20120124-ssinghp-105903763

PATIENT
  Age: 68 Year
  Sex: Female
  Weight: 56 kg

DRUGS (7)
  1. DOCETAXEL [Suspect]
     Active Substance: DOCETAXEL
     Indication: Breast cancer
     Dosage: 122.25 MILLIGRAM, ONCE A DAY (
     Route: 042
     Dates: start: 20110609, end: 20110609
  2. DOCETAXEL [Suspect]
     Active Substance: DOCETAXEL
     Dosage: 122.25 MILLIGRAM, ONCE A DAY (
     Route: 042
     Dates: start: 20110630, end: 20110630
  3. CAPECITABINE [Suspect]
     Active Substance: CAPECITABINE
     Indication: Breast cancer
     Dosage: 1650 MG/M2 (DAILY DOSE:
     Route: 048
     Dates: start: 20110609, end: 20110701
  4. CAPECITABINE [Suspect]
     Active Substance: CAPECITABINE
     Dosage: 1650 MG/M2 (DAILY DOSE: 1650
     Route: 048
     Dates: start: 20110704
  5. BISOPROLOL [Concomitant]
     Active Substance: BISOPROLOL
     Indication: Hypertension
     Dosage: 2.5 MILLIGRAM, ONCE A DAY (
     Route: 048
     Dates: start: 1991
  6. LEVOTHYROXINE [Concomitant]
     Active Substance: LEVOTHYROXINE
     Indication: Thyroidectomy
     Dosage: 50 MICROGRAM, ONCE A DAY (DAILY D
     Route: 048
     Dates: start: 2005, end: 20110728
  7. LEVOTHYROXINE [Concomitant]
     Active Substance: LEVOTHYROXINE
     Dosage: 100 MICROGRAM, ONCE A DAY
     Route: 048
     Dates: start: 20110728

REACTIONS (9)
  - Atrial fibrillation [Recovered/Resolved]
  - Febrile neutropenia [Recovered/Resolved]
  - Pancreatic atrophy [Recovered/Resolved]
  - Renal failure [Recovered/Resolved]
  - Large intestine infection [Recovered/Resolved]
  - Tachycardia [Recovered/Resolved]
  - Escherichia urinary tract infection [Recovered/Resolved]
  - Urinary tract infection bacterial [Recovered/Resolved]
  - Weight decreased [Not Recovered/Not Resolved]

NARRATIVE: CASE EVENT DATE: 20110704
